FAERS Safety Report 19508408 (Version 1)
Quarter: 2021Q3

REPORT INFORMATION
  Report Type: Spontaneous
  Country: CN (occurrence: CN)
  Receive Date: 20210708
  Receipt Date: 20210708
  Transmission Date: 20211014
  Serious: Yes (Hospitalization)
  Sender: FDA-Public Use
  Company Number: CN-ELI_LILLY_AND_COMPANY-CN202106013649

PATIENT
  Age: 60 Year
  Sex: Female

DRUGS (4)
  1. CYMBALTA [Suspect]
     Active Substance: DULOXETINE HYDROCHLORIDE
     Indication: DEPRESSION
     Dosage: 60 MG, DAILY
     Route: 048
     Dates: start: 20210414, end: 20210602
  2. OU LAN NING [Suspect]
     Active Substance: OLANZAPINE
     Indication: DEPRESSION
     Dosage: 10 MG, DAILY EVERY NIGHT (QN)
     Route: 048
     Dates: start: 20210414, end: 20210601
  3. OU LAN NING [Suspect]
     Active Substance: OLANZAPINE
     Dosage: 5 MG, DAILY EVERY NIGHT (QN)
     Route: 048
     Dates: start: 20210602, end: 20210602
  4. OU LAN NING [Suspect]
     Active Substance: OLANZAPINE
     Dosage: 2.5 MG, DAILY EVERY NIGHT (QN)
     Route: 048
     Dates: start: 20210603, end: 20210605

REACTIONS (4)
  - Aspartate aminotransferase abnormal [Recovering/Resolving]
  - Gamma-glutamyltransferase abnormal [Recovering/Resolving]
  - Depression [Recovering/Resolving]
  - Alanine aminotransferase abnormal [Recovering/Resolving]

NARRATIVE: CASE EVENT DATE: 20210602
